FAERS Safety Report 7203836-7 (Version None)
Quarter: 2010Q4

REPORT INFORMATION
  Report Type: 
  Country: None (occurrence: None)
  Receive Date: 20101217
  Receipt Date: 20101201
  Transmission Date: 20110411
  Serious: No
  Sender: FDA-Public Use
  Company Number: 2010-01025

PATIENT
  Sex: Male

DRUGS (1)
  1. ZICAM COLD REMEDY ORAL MIST [Suspect]
     Dosage: AS DIRECTED X 3 DAY
     Dates: start: 20101129, end: 20101201

REACTIONS (2)
  - AGEUSIA [None]
  - ANOSMIA [None]
